FAERS Safety Report 20471729 (Version 1)
Quarter: 2022Q1

REPORT INFORMATION
  Report Type: Spontaneous
  Country: US (occurrence: US)
  Receive Date: 20220214
  Receipt Date: 20220214
  Transmission Date: 20220424
  Serious: No
  Sender: FDA-Public Use
  Company Number: US-SA-SAC20220204000920

PATIENT
  Age: 38 Year
  Sex: Female

DRUGS (1)
  1. DUPIXENT [Suspect]
     Active Substance: DUPILUMAB
     Dosage: DUPIXENT 300MG/2ML PFS 2X2ML DOSE: 300 MG /2ML
     Route: 058
     Dates: start: 202112

REACTIONS (1)
  - Unevaluable event [Unknown]
